FAERS Safety Report 25182972 (Version 1)
Quarter: 2025Q2

REPORT INFORMATION
  Report Type: Other
  Country: JP (occurrence: JP)
  Receive Date: 20250410
  Receipt Date: 20250410
  Transmission Date: 20250716
  Serious: Yes (Hospitalization, Other)
  Sender: ESJAY PHARMA
  Company Number: JP-ESJAY PHARMA-000513

PATIENT
  Age: 21 Year
  Sex: Female

DRUGS (6)
  1. RISPERIDONE [Suspect]
     Active Substance: RISPERIDONE
     Indication: Schizophrenia
  2. DEXTROMETHORPHAN [Concomitant]
     Active Substance: DEXTROMETHORPHAN
     Indication: Product used for unknown indication
  3. TRIAZOLAM [Concomitant]
     Active Substance: TRIAZOLAM
     Indication: Schizophrenia
  4. ALPRAZOLAM [Concomitant]
     Active Substance: ALPRAZOLAM
     Indication: Schizophrenia
  5. DULOXETINE [Concomitant]
     Active Substance: DULOXETINE
     Indication: Schizophrenia
  6. BROTIZOLAM [Concomitant]
     Active Substance: BROTIZOLAM
     Indication: Schizophrenia

REACTIONS (17)
  - Generalised tonic-clonic seizure [Recovered/Resolved]
  - Coma [Recovered/Resolved]
  - Hypotension [Recovered/Resolved]
  - Tachycardia [Recovered/Resolved]
  - Oxygen saturation decreased [Recovered/Resolved]
  - Flushing [Recovered/Resolved]
  - Metabolic acidosis [Recovered/Resolved]
  - Status epilepticus [Recovered/Resolved]
  - Atelectasis [Recovered/Resolved]
  - Hyperhidrosis [Recovered/Resolved]
  - Quadriplegia [Recovered/Resolved]
  - Mydriasis [Recovered/Resolved]
  - Areflexia [Recovered/Resolved]
  - Hyperthermia [Recovered/Resolved]
  - Intentional overdose [Unknown]
  - Drug interaction [Unknown]
  - Suicide attempt [Unknown]
